FAERS Safety Report 4563257-2 (Version None)
Quarter: 2005Q1

REPORT INFORMATION
  Report Type: 
  Country: None (occurrence: None)
  Receive Date: 20050128
  Receipt Date: 20050117
  Transmission Date: 20050727
  Serious: Yes (Death, Other)
  Sender: FDA-Public Use
  Company Number: IE-ABBOTT-05P-229-0287197-00

PATIENT
  Sex: Male

DRUGS (1)
  1. KLACID [Suspect]
     Indication: PNEUMONIA

REACTIONS (4)
  - COMPLETED SUICIDE [None]
  - DELUSIONAL DISORDER, UNSPECIFIED TYPE [None]
  - HALLUCINATION [None]
  - SLEEP DISORDER [None]
